FAERS Safety Report 10776479 (Version 1)
Quarter: 2015Q1

REPORT INFORMATION
  Report Type: Spontaneous
  Country: US (occurrence: None)
  Receive Date: 20150205
  Receipt Date: 20150205
  Transmission Date: 20150721
  Serious: Yes (Other)
  Sender: FDA-Public Use
  Company Number: None

PATIENT
  Age: 57 Year
  Sex: Male
  Weight: 102.06 kg

DRUGS (12)
  1. POTASSIUM [Concomitant]
     Active Substance: POTASSIUM
  2. SPIRONOLACTONE. [Concomitant]
     Active Substance: SPIRONOLACTONE
  3. ONDANSETRON [Concomitant]
     Active Substance: ONDANSETRON
  4. METOPROLOL [Concomitant]
     Active Substance: METOPROLOL
  5. LIDOCAINE OINTMENT [Concomitant]
     Active Substance: LIDOCAINE
  6. PROCTOFOAM HC [Concomitant]
     Active Substance: HYDROCORTISONE ACETATE\PRAMOXINE HYDROCHLORIDE
  7. LEDIPASVIR/SOFOSBUVIR [Suspect]
     Active Substance: LEDIPASVIR\SOFOSBUVIR
     Indication: CHRONIC HEPATITIS C
     Dosage: 1 PILL
     Route: 048
     Dates: start: 20141211, end: 20150204
  8. MVI (WITHOUT MINERALS) [Concomitant]
  9. FUROSEMIDE. [Concomitant]
     Active Substance: FUROSEMIDE
  10. LISINOPRIL. [Concomitant]
     Active Substance: LISINOPRIL
  11. FISH OIL [Concomitant]
     Active Substance: FISH OIL
  12. LACTULOSE SYRUP [Concomitant]

REACTIONS (2)
  - Burning sensation [None]
  - No therapeutic response [None]

NARRATIVE: CASE EVENT DATE: 20141211
